FAERS Safety Report 9695217 (Version 1)
Quarter: 2013Q4

REPORT INFORMATION
  Report Type: Spontaneous
  Country: US (occurrence: US)
  Receive Date: 20131119
  Receipt Date: 20131119
  Transmission Date: 20140711
  Serious: Yes (Other)
  Sender: FDA-Public Use
  Company Number: US-BAYER-2013-138212

PATIENT
  Age: 63 Year
  Sex: Female
  Weight: 56.69 kg

DRUGS (4)
  1. ALEVE CAPLET [Suspect]
     Indication: SLEEP DISORDER THERAPY
     Dosage: 1 DF, PRN
     Route: 048
     Dates: end: 201311
  2. NORVASC [Concomitant]
  3. SINGULAIR [Concomitant]
  4. SIMVASTATIN [Concomitant]

REACTIONS (6)
  - Asthma [Recovered/Resolved]
  - Dyspnoea [Recovered/Resolved]
  - Choking sensation [Recovered/Resolved]
  - Increased upper airway secretion [Recovered/Resolved]
  - Anxiety [Recovered/Resolved]
  - Off label use [None]
